FAERS Safety Report 23337189 (Version 1)
Quarter: 2023Q4

REPORT INFORMATION
  Report Type: Spontaneous
  Country: US (occurrence: US)
  Receive Date: 20231226
  Receipt Date: 20231226
  Transmission Date: 20240110
  Serious: No
  Sender: FDA-Public Use
  Company Number: US-PADAGIS-2023PAD01804

PATIENT

DRUGS (1)
  1. TESTOSTERONE [Suspect]
     Active Substance: TESTOSTERONE
     Indication: Blood testosterone decreased
     Dosage: 40.5 G TWO PUMPS DAILY
     Route: 065
     Dates: start: 202311

REACTIONS (3)
  - Insomnia [Unknown]
  - Drug hypersensitivity [Recovering/Resolving]
  - Product use issue [Unknown]

NARRATIVE: CASE EVENT DATE: 20231101
